FAERS Safety Report 6340637-6 (Version None)
Quarter: 2009Q3

REPORT INFORMATION
  Report Type: 
  Country: None (occurrence: None)
  Receive Date: 20090904
  Receipt Date: 20090826
  Transmission Date: 20100115
  Serious: Yes (Hospitalization, Other)
  Sender: FDA-Public Use
  Company Number: GB-AVENTIS-200919708GDDC

PATIENT
  Age: 45 Year
  Sex: Male

DRUGS (14)
  1. HYDROCORTISONE [Suspect]
     Indication: IMMUNOSUPPRESSION
  2. HYDROCORTISONE [Suspect]
     Indication: RENAL AND PANCREAS TRANSPLANT
  3. PREDNISOLONE [Suspect]
     Indication: IMMUNOSUPPRESSION
  4. PREDNISOLONE [Suspect]
     Indication: RENAL AND PANCREAS TRANSPLANT
  5. MYCOPHENOLATE MOFETIL [Suspect]
     Indication: IMMUNOSUPPRESSION
     Route: 048
  6. MYCOPHENOLATE MOFETIL [Suspect]
     Route: 042
  7. MYCOPHENOLATE MOFETIL [Suspect]
     Indication: RENAL AND PANCREAS TRANSPLANT
     Route: 048
  8. MYCOPHENOLATE MOFETIL [Suspect]
     Route: 042
  9. METHYLPREDNISOLONE [Suspect]
     Indication: RENAL AND PANCREAS TRANSPLANT
  10. BASILIXIMAB [Suspect]
     Indication: RENAL AND PANCREAS TRANSPLANT
  11. CYCLOSPORINE [Suspect]
     Indication: IMMUNOSUPPRESSION
  12. CYCLOSPORINE [Suspect]
     Indication: RENAL AND PANCREAS TRANSPLANT
  13. TACROLIMUS [Suspect]
     Indication: IMMUNOSUPPRESSION
  14. TACROLIMUS [Suspect]
     Indication: RENAL AND PANCREAS TRANSPLANT

REACTIONS (1)
  - URINARY TRACT INFECTION [None]
